FAERS Safety Report 10076769 (Version 3)
Quarter: 2014Q2

REPORT INFORMATION
  Report Type: Spontaneous
  Country: FR (occurrence: FR)
  Receive Date: 20140414
  Receipt Date: 20140616
  Transmission Date: 20141212
  Serious: Yes (Other)
  Sender: FDA-Public Use
  Company Number: FR-PFIZER INC-2014099304

PATIENT
  Age: 20 Year
  Sex: Female

DRUGS (18)
  1. METHOTREXATE SODIUM [Suspect]
     Indication: ACUTE LYMPHOCYTIC LEUKAEMIA
     Dosage: 15 MG, UNK
     Route: 037
     Dates: start: 20140210, end: 20140210
  2. METHOTREXATE SODIUM [Suspect]
     Dosage: 15 MG, UNK
     Route: 037
     Dates: start: 20140217, end: 20140217
  3. METHOTREXATE SODIUM [Suspect]
     Dosage: 15 MG, UNK
     Route: 037
     Dates: start: 20140225, end: 20140225
  4. DEPO-MEDROL [Suspect]
     Indication: ACUTE LYMPHOCYTIC LEUKAEMIA
     Dosage: UNK
     Route: 037
     Dates: start: 20140210, end: 20140210
  5. DEPO-MEDROL [Suspect]
     Dosage: UNK
     Route: 037
     Dates: start: 20140217, end: 20140217
  6. DEPO-MEDROL [Suspect]
     Dosage: UNK
     Route: 037
     Dates: start: 20140225, end: 20140225
  7. CYTARABINE EBEWE [Suspect]
     Indication: ACUTE LYMPHOCYTIC LEUKAEMIA
     Dosage: 40 MG, UNK
     Route: 037
     Dates: start: 20140210, end: 20140210
  8. CYTARABINE EBEWE [Suspect]
     Dosage: 40 MG, UNK
     Route: 037
     Dates: start: 20140217, end: 20140217
  9. CYTARABINE EBEWE [Suspect]
     Dosage: 40 MG, UNK
     Route: 037
     Dates: start: 20140225, end: 20140225
  10. KIDROLASE [Suspect]
     Dosage: UNK
     Route: 051
     Dates: end: 201402
  11. KIDROLASE [Suspect]
     Dosage: UNK
     Route: 051
     Dates: start: 20140305, end: 20140307
  12. PIPERACILLIN SODIUM/TAZOBACTAM SODIUM [Suspect]
     Indication: FEBRILE BONE MARROW APLASIA
     Dosage: 3 DF, 1X/DAY
     Route: 042
     Dates: start: 20140222, end: 20140309
  13. VALACICLOVIR HYDROCHLORIDE [Suspect]
     Dosage: 500 MG
     Route: 048
     Dates: start: 20140209, end: 20140308
  14. DUPHASTON [Suspect]
     Dosage: UNK
     Route: 048
     Dates: start: 20140212, end: 20140308
  15. HUMALOG [Concomitant]
  16. LANTUS [Concomitant]
  17. PRIMPERAN [Concomitant]
  18. BACTRIM FORTE [Concomitant]

REACTIONS (7)
  - Aphasia [Recovered/Resolved]
  - VIIth nerve paralysis [Recovered/Resolved]
  - Epilepsy [Recovered/Resolved]
  - Headache [Unknown]
  - Aphasia [None]
  - Facial asymmetry [None]
  - Leukoencephalopathy [None]
